FAERS Safety Report 7214883-3 (Version None)
Quarter: 2011Q1

REPORT INFORMATION
  Report Type: 
  Country: None (occurrence: None)
  Receive Date: 20110107
  Receipt Date: 20100614
  Transmission Date: 20110831
  Serious: No
  Sender: FDA-Public Use
  Company Number: A0856098A

PATIENT
  Age: 69 Year
  Sex: Female
  Weight: 80.9 kg

DRUGS (3)
  1. LOVAZA [Suspect]
     Dosage: 1CAP PER DAY
     Route: 048
     Dates: start: 20100304, end: 20100316
  2. MULTIVITAMIN [Concomitant]
  3. ACTIVELLA [Concomitant]

REACTIONS (2)
  - DIARRHOEA [None]
  - ABDOMINAL PAIN UPPER [None]
